FAERS Safety Report 6475193-5 (Version None)
Quarter: 2009Q4

REPORT INFORMATION
  Report Type: 
  Country: None (occurrence: None)
  Receive Date: 20091204
  Receipt Date: 20090521
  Transmission Date: 20100525
  Serious: Yes (Hospitalization)
  Sender: FDA-Public Use
  Company Number: US-ELI_LILLY_AND_COMPANY-US200904001179

PATIENT
  Age: 63 Year
  Sex: Male
  Weight: 85.261 kg

DRUGS (7)
  1. BYETTA [Suspect]
  2. LISINOPRIL [Concomitant]
  3. METFORMIN HCL [Concomitant]
  4. ACTOS [Concomitant]
  5. LOVASTATIN [Concomitant]
  6. PROTONIX [Concomitant]
  7. BABY ASPIRIN [Concomitant]

REACTIONS (4)
  - ALANINE AMINOTRANSFERASE INCREASED [None]
  - ASPARTATE AMINOTRANSFERASE INCREASED [None]
  - PANCREATITIS ACUTE [None]
  - WEIGHT INCREASED [None]
